FAERS Safety Report 6284256-9 (Version None)
Quarter: 2009Q3

REPORT INFORMATION
  Report Type: 
  Country: None (occurrence: None)
  Receive Date: 20090727
  Receipt Date: 20090717
  Transmission Date: 20100115
  Serious: Yes (Hospitalization)
  Sender: FDA-Public Use
  Company Number: MA-JNJFOC-20090706843

PATIENT
  Age: 36 Year
  Sex: Male

DRUGS (2)
  1. RISPERDAL [Suspect]
     Route: 065
  2. RISPERDAL [Suspect]
     Indication: SCHIZOPHRENIA
     Route: 065

REACTIONS (3)
  - AGRANULOCYTOSIS [None]
  - HYPERTHERMIA [None]
  - JAUNDICE [None]
